FAERS Safety Report 6820133-X (Version None)
Quarter: 2010Q3

REPORT INFORMATION
  Report Type: 
  Country: None (occurrence: None)
  Receive Date: 20100707
  Receipt Date: 20100630
  Transmission Date: 20110219
  Serious: Yes (Disabling, Other)
  Sender: FDA-Public Use
  Company Number: US-MERCK-1006USA02447

PATIENT
  Sex: Female

DRUGS (1)
  1. FOSAMAX [Suspect]
     Route: 048
     Dates: start: 20060101, end: 20080101

REACTIONS (8)
  - ADVERSE EVENT [None]
  - BONE DENSITY DECREASED [None]
  - DEVICE FAILURE [None]
  - IMPAIRED HEALING [None]
  - INFLAMMATION [None]
  - OSTEONECROSIS OF JAW [None]
  - PERIODONTITIS [None]
  - SURGERY [None]
